FAERS Safety Report 6898971-7 (Version None)
Quarter: 2010Q3

REPORT INFORMATION
  Report Type: 
  Country: None (occurrence: None)
  Receive Date: 20100802
  Receipt Date: 20071212
  Transmission Date: 20110219
  Serious: No
  Sender: FDA-Public Use
  Company Number: US-PFIZER INC-2007104981

PATIENT
  Sex: Female
  Weight: 81.65 kg

DRUGS (10)
  1. LYRICA [Suspect]
     Indication: BACK PAIN
     Dates: start: 20070101
  2. LYRICA [Interacting]
     Indication: DIABETIC NEUROPATHY
  3. SERZONE [Interacting]
     Indication: ILL-DEFINED DISORDER
  4. ZETIA [Concomitant]
  5. ANASTROZOLE [Concomitant]
  6. DYAZIDE [Concomitant]
  7. LANTUS [Concomitant]
  8. HUMALOG [Concomitant]
  9. METOPROLOL [Concomitant]
  10. PROZAC [Concomitant]

REACTIONS (5)
  - DRUG INTERACTION [None]
  - FEELING DRUNK [None]
  - GAIT DISTURBANCE [None]
  - HYPERSOMNIA [None]
  - MEDICATION ERROR [None]
